FAERS Safety Report 10057570 (Version 5)
Quarter: 2015Q2

REPORT INFORMATION
  Report Type: Report from Study
  Country: FR (occurrence: FR)
  Receive Date: 20140404
  Receipt Date: 20150406
  Transmission Date: 20150821
  Serious: Yes (Hospitalization)
  Sender: FDA-Public Use
  Company Number: FR-ROCHE-1373747

PATIENT
  Age: 89 Year
  Sex: Female
  Weight: 64 kg

DRUGS (20)
  1. CONTRAMAL [Concomitant]
     Active Substance: TRAMADOL HYDROCHLORIDE
     Indication: CHOLECYSTITIS ACUTE
     Dosage: CONTRAMAL 50.
     Route: 065
     Dates: start: 20130614, end: 20130618
  2. ISUPREL [Concomitant]
     Active Substance: ISOPROTERENOL HYDROCHLORIDE
     Indication: ATRIOVENTRICULAR BLOCK COMPLETE
     Route: 065
     Dates: start: 20131231, end: 20140103
  3. TRAMADOL [Concomitant]
     Active Substance: TRAMADOL
     Route: 065
     Dates: start: 20140320
  4. FENOFIBRAT [Concomitant]
     Active Substance: FENOFIBRATE
     Indication: HYPERCHOLESTEROLAEMIA
     Route: 065
     Dates: start: 200301
  5. FENOFIBRAT [Concomitant]
     Active Substance: FENOFIBRATE
     Route: 065
     Dates: start: 20140320
  6. LACTULOSE. [Concomitant]
     Active Substance: LACTULOSE
     Dosage: WHEN REQUIRED.
     Route: 065
     Dates: start: 20130414
  7. VISMODEGIB [Suspect]
     Active Substance: VISMODEGIB
     Indication: BASAL CELL CARCINOMA
     Dosage: DATE OF LAST DOSE PRIOR TO SERIOUS ADVERSE EVENT: 04/OCT/2013
     Route: 048
     Dates: start: 20130411
  8. PARACETAMOL [Concomitant]
     Active Substance: ACETAMINOPHEN
     Indication: MUSCULOSKELETAL PAIN
     Route: 065
     Dates: start: 20130912
  9. FORLAX [Concomitant]
     Active Substance: POLYETHYLENE GLYCOL 4000
     Indication: CONSTIPATION
     Dosage: 1 SACHET PRN
     Route: 065
     Dates: start: 201406
  10. KENZEN [Concomitant]
     Active Substance: CANDESARTAN
     Indication: HYPERTENSION
     Route: 065
     Dates: start: 200301
  11. DOLIPRANE [Concomitant]
     Active Substance: ACETAMINOPHEN
     Indication: CHOLECYSTITIS ACUTE
     Route: 065
     Dates: start: 20130505
  12. THIOCOLCHICOSIDE [Concomitant]
     Active Substance: THIOCOLCHICOSIDE
     Indication: CHOLECYSTITIS ACUTE
     Route: 065
     Dates: start: 20130618, end: 20130628
  13. ALPRAZOLAM. [Concomitant]
     Active Substance: ALPRAZOLAM
     Indication: SLEEP DISORDER
     Route: 065
     Dates: start: 20121014
  14. LACTULOSE. [Concomitant]
     Active Substance: LACTULOSE
     Indication: CONSTIPATION
     Route: 065
     Dates: start: 20130412, end: 20130413
  15. TOPALGIC (FRANCE) [Concomitant]
     Active Substance: TRAMADOL
     Indication: CHOLECYSTITIS ACUTE
     Route: 065
     Dates: start: 20130618, end: 20130628
  16. TRAMADOL [Concomitant]
     Active Substance: TRAMADOL
     Indication: PAIN
     Route: 065
     Dates: start: 20140320
  17. DOLIPRANE [Concomitant]
     Active Substance: ACETAMINOPHEN
     Route: 065
     Dates: start: 20130618, end: 20130628
  18. AUGMENTIN [Concomitant]
     Active Substance: AMOXICILLIN\CLAVULANATE POTASSIUM
     Indication: CHOLECYSTITIS ACUTE
     Route: 065
     Dates: start: 20130614, end: 20130620
  19. KENZEN [Concomitant]
     Active Substance: CANDESARTAN
     Route: 065
     Dates: start: 20140320
  20. ALPRAZOLAM. [Concomitant]
     Active Substance: ALPRAZOLAM
     Route: 065
     Dates: start: 20140320

REACTIONS (1)
  - Duodenal ulcer [Recovered/Resolved]

NARRATIVE: CASE EVENT DATE: 20140107
